FAERS Safety Report 7965639-5 (Version None)
Quarter: 2011Q4

REPORT INFORMATION
  Report Type: 
  Country: None (occurrence: None)
  Receive Date: 20111208
  Receipt Date: 20111201
  Transmission Date: 20120403
  Serious: Yes (Death, Hospitalization, Other)
  Sender: FDA-Public Use
  Company Number: PHHY2011US105254

PATIENT
  Age: 51 Year
  Sex: Male

DRUGS (3)
  1. MYCOPHENOLATE MOFETIL [Suspect]
     Indication: HEART TRANSPLANT
  2. TACROLIMUS [Suspect]
     Indication: IMMUNOSUPPRESSION
  3. CORTICOSTEROIDS [Suspect]
     Indication: IMMUNOSUPPRESSANT DRUG THERAPY

REACTIONS (13)
  - RESPIRATORY FAILURE [None]
  - GASTRITIS [None]
  - VOMITING [None]
  - DEATH [None]
  - NAUSEA [None]
  - DYSPNOEA [None]
  - STRONGYLOIDIASIS [None]
  - DUODENITIS [None]
  - GASTRIC MUCOSA ERYTHEMA [None]
  - IMMUNOSUPPRESSANT DRUG LEVEL INCREASED [None]
  - HYPOXIA [None]
  - PULMONARY ALVEOLAR HAEMORRHAGE [None]
  - INFECTION PARASITIC [None]
